FAERS Safety Report 7074090-4 (Version None)
Quarter: 2010Q4

REPORT INFORMATION
  Report Type: 
  Country: None (occurrence: None)
  Receive Date: 20101029
  Receipt Date: 20101025
  Transmission Date: 20110411
  Serious: Yes (Other)
  Sender: FDA-Public Use
  Company Number: BR-ROCHE-729663

PATIENT
  Sex: Male
  Weight: 82 kg

DRUGS (14)
  1. METHOXY POLYETHYLENE GLYCOL-EPOETIN BETA [Suspect]
     Route: 058
     Dates: start: 20100210
  2. METHOXY POLYETHYLENE GLYCOL-EPOETIN BETA [Suspect]
     Dosage: FORM: PRE-FILLED SYRRINGE (PFS).  LAST DOSE PRIOR TO SAE ON 08 SEPTEMBER 2010.
     Route: 058
  3. AMLODIPINE [Concomitant]
     Dates: start: 20090501
  4. ENALAPRIL MALEATE [Concomitant]
     Dates: start: 20090501
  5. ENALAPRIL MALEATE [Concomitant]
     Dates: start: 20100909
  6. OMEPRAZOLE [Concomitant]
     Dates: start: 20100207
  7. ACETYLSALICYLIC ACID SRT [Concomitant]
     Dates: start: 20090501
  8. ALLOPURINOL [Concomitant]
     Dates: start: 20090501
  9. VITAMIN B COMPLEX CAP [Concomitant]
     Dates: start: 20090901
  10. FOLATE/THIAMINE [Concomitant]
     Dosage: DRUG REPORTED: FOLATE.
     Dates: start: 20090901
  11. FUROSEMIDE [Concomitant]
     Dates: start: 20100312
  12. FUROSEMIDE [Concomitant]
     Dates: start: 20100925
  13. HYDROCHLOROTHIAZIDE [Concomitant]
     Dates: start: 20100331
  14. SEVELAMER [Concomitant]
     Dates: start: 20100515

REACTIONS (1)
  - RENAL IMPAIRMENT [None]
